FAERS Safety Report 16261363 (Version 1)
Quarter: 2019Q2

REPORT INFORMATION
  Report Type: Spontaneous
  Country: BE (occurrence: BE)
  Receive Date: 20190501
  Receipt Date: 20190501
  Transmission Date: 20190711
  Serious: Yes (Other)
  Sender: FDA-Public Use
  Company Number: BE-SA-2019SA117165

PATIENT
  Sex: Female

DRUGS (1)
  1. ALDURAZYME [Suspect]
     Active Substance: LARONIDASE
     Indication: MUCOPOLYSACCHARIDOSIS I
     Route: 065

REACTIONS (3)
  - Pyrexia [Unknown]
  - Chills [Unknown]
  - Device related infection [Unknown]

NARRATIVE: CASE EVENT DATE: 20190412
